FAERS Safety Report 7302457-5 (Version None)
Quarter: 2011Q1

REPORT INFORMATION
  Report Type: 
  Country: None (occurrence: None)
  Receive Date: 20110218
  Receipt Date: 20110209
  Transmission Date: 20110831
  Serious: No
  Sender: FDA-Public Use
  Company Number: B0699883A

PATIENT
  Age: 12 Year

DRUGS (1)
  1. RELENZA [Suspect]
     Dosage: 30MG PER DAY
     Route: 055

REACTIONS (1)
  - OVERDOSE [None]
